FAERS Safety Report 5526295-9 (Version None)
Quarter: 2007Q4

REPORT INFORMATION
  Report Type: 
  Country: None (occurrence: None)
  Receive Date: 20071121
  Receipt Date: 20071121
  Transmission Date: 20080405
  Serious: Yes (Hospitalization)
  Sender: FDA-Public Use
  Company Number: None

PATIENT
  Sex: Male
  Weight: 84.82 kg

DRUGS (1)
  1. TEMOZOLOMIDE [Suspect]
     Dosage: 4050 MG

REACTIONS (2)
  - EYE SWELLING [None]
  - PAIN [None]
